FAERS Safety Report 9036504 (Version 1)
Quarter: 2013Q1

REPORT INFORMATION
  Report Type: Report from Study
  Country: US (occurrence: US)
  Receive Date: 20130129
  Receipt Date: 20130129
  Transmission Date: 20140127
  Serious: No
  Sender: FDA-Public Use
  Company Number: US-ABBOTT-12P-163-0899556-00

PATIENT
  Age: 48 Year
  Sex: Female

DRUGS (14)
  1. HUMIRA 40 MG/0.8 ML PEN [Suspect]
     Indication: RHEUMATOID ARTHRITIS
     Dosage: INTERRUPTED
     Dates: start: 20111216
  2. CARTIA XT [Concomitant]
     Indication: HYPERTENSION
  3. ESTRADIOL [Concomitant]
     Indication: HORMONE REPLACEMENT THERAPY
  4. LORAZEPAM [Concomitant]
     Indication: INSOMNIA
     Dosage: DAILY PRN
  5. HYDROCODONE W/APAP [Concomitant]
     Indication: INTERVERTEBRAL DISC PROTRUSION
     Dosage: 7.5 /750 MG
  6. PRILOSEC [Concomitant]
     Indication: ILL-DEFINED DISORDER
  7. GABAPENTIN [Concomitant]
     Indication: NEUROPATHY PERIPHERAL
  8. HYDROXYCHLOROQUINE [Concomitant]
     Indication: RHEUMATOID ARTHRITIS
     Dosage: AT BEDTIME
  9. FLEXERIL [Concomitant]
     Indication: MUSCLE SPASMS
     Dosage: AT BEDTIME
  10. SULFASALAZINE [Concomitant]
     Indication: RHEUMATOID ARTHRITIS
     Dosage: 2 TABS BID
  11. VENTOLIN HFA [Concomitant]
     Indication: CHRONIC OBSTRUCTIVE PULMONARY DISEASE
     Dosage: DAILY EVERY 4 HOUS PRN
  12. SYMBICORT [Concomitant]
     Indication: CHRONIC OBSTRUCTIVE PULMONARY DISEASE
     Dosage: 2 PUFFS IN AM AND 2 PUFFS IN PM
  13. NEBUTOL/ALBUTERAL SULFATE 0.83 INHALER [Concomitant]
     Indication: CHRONIC OBSTRUCTIVE PULMONARY DISEASE
  14. SPIRIVA [Concomitant]
     Indication: CHRONIC OBSTRUCTIVE PULMONARY DISEASE
     Dosage: INHALER PRN IN AM

REACTIONS (3)
  - Candida infection [Not Recovered/Not Resolved]
  - Upper respiratory tract infection [Not Recovered/Not Resolved]
  - Pharyngitis streptococcal [Not Recovered/Not Resolved]
